FAERS Safety Report 9729356 (Version 1)
Quarter: 2013Q4

REPORT INFORMATION
  Report Type: Spontaneous
  Country: CH (occurrence: CH)
  Receive Date: 20131204
  Receipt Date: 20131204
  Transmission Date: 20140711
  Serious: Yes (Hospitalization)
  Sender: FDA-Public Use
  Company Number: CH-ASTRAZENECA-2013SE87789

PATIENT
  Age: 76 Year
  Sex: Male
  Weight: 82 kg

DRUGS (14)
  1. BRILIQUE [Suspect]
     Indication: ACUTE MYOCARDIAL INFARCTION
     Route: 048
     Dates: start: 201209, end: 201210
  2. ASPIRIN CARDIO [Interacting]
     Indication: ACUTE MYOCARDIAL INFARCTION
     Route: 048
     Dates: start: 201209
  3. DAFALGAN [Interacting]
     Indication: HIP ARTHROPLASTY
     Route: 048
     Dates: start: 201209
  4. DAFALGAN [Interacting]
     Indication: HIP ARTHROPLASTY
     Route: 048
     Dates: start: 201209
  5. XARELTO [Interacting]
     Indication: HIP ARTHROPLASTY
     Route: 048
     Dates: start: 20120906, end: 201210
  6. FRAGMIN [Interacting]
     Indication: PROPHYLAXIS
     Route: 058
     Dates: start: 201210
  7. PLAVIX [Interacting]
     Indication: ACUTE MYOCARDIAL INFARCTION
     Route: 048
     Dates: start: 201210
  8. TILUR [Concomitant]
     Route: 048
     Dates: start: 201209, end: 20120919
  9. TRAUMANASE [Concomitant]
     Route: 048
     Dates: start: 201209, end: 201209
  10. BELOC [Concomitant]
     Route: 048
     Dates: start: 201209
  11. TOREM [Concomitant]
     Route: 048
  12. TRIATEC [Concomitant]
     Route: 048
  13. PANTOZOL [Concomitant]
     Route: 048
     Dates: start: 201209
  14. SORTIS [Concomitant]

REACTIONS (7)
  - Drug interaction [Unknown]
  - Anaemia [Unknown]
  - Gastrointestinal haemorrhage [Unknown]
  - Melaena [Unknown]
  - Occult blood positive [Unknown]
  - Haemorrhoids [Unknown]
  - Diverticulum intestinal [Unknown]
